FAERS Safety Report 15250405 (Version 1)
Quarter: 2018Q3

REPORT INFORMATION
  Report Type: Report from Study
  Country: None (occurrence: LB)
  Receive Date: 20180807
  Receipt Date: 20180807
  Transmission Date: 20181010
  Serious: Yes (Death, Hospitalization, Disabling, Other)
  Sender: FDA-Public Use
  Company Number: LB-ABBVIE-18K-093-2443298-00

PATIENT
  Age: 69 Year
  Sex: Male
  Weight: 80 kg

DRUGS (1)
  1. HUMIRA [Suspect]
     Active Substance: ADALIMUMAB
     Indication: RHEUMATOID ARTHRITIS
     Route: 058
     Dates: start: 201609, end: 201806

REACTIONS (10)
  - Cardiac arrest [Fatal]
  - Dizziness [Recovered/Resolved]
  - Blood glucose abnormal [Recovering/Resolving]
  - General physical health deterioration [Fatal]
  - Dyspnoea [Fatal]
  - Myocardial infarction [Fatal]
  - Gait inability [Recovered/Resolved]
  - Platelet count decreased [Not Recovered/Not Resolved]
  - Pulmonary oedema [Recovered/Resolved]
  - Arterial occlusive disease [Recovered/Resolved]

NARRATIVE: CASE EVENT DATE: 201806
